FAERS Safety Report 8400479-4 (Version None)
Quarter: 2012Q2

REPORT INFORMATION
  Report Type: 
  Country: None (occurrence: None)
  Receive Date: 20120531
  Receipt Date: 20120518
  Transmission Date: 20120825
  Serious: Yes (Death)
  Sender: FDA-Public Use
  Company Number: IT-CELGENEUS-083-21880-12011983

PATIENT
  Sex: Male

DRUGS (3)
  1. LEVEMIR [Concomitant]
     Dosage: UD
     Route: 065
     Dates: end: 20111115
  2. REVLIMID [Suspect]
     Dosage: 10 MILLIGRAM
     Route: 048
     Dates: start: 20090925, end: 20111115
  3. GLYBURIDE [Concomitant]
     Route: 065
     Dates: end: 20111115

REACTIONS (1)
  - CARDIAC ARREST [None]
